FAERS Safety Report 12700011 (Version 2)
Quarter: 2016Q3

REPORT INFORMATION
  Report Type: Spontaneous
  Country: FR (occurrence: FR)
  Receive Date: 20160830
  Receipt Date: 20160907
  Transmission Date: 20161109
  Serious: Yes (Hospitalization, Other)
  Sender: FDA-Public Use
  Company Number: FR-PFIZER INC-2016399206

PATIENT
  Age: 81 Year
  Sex: Male

DRUGS (5)
  1. MESTINON [Concomitant]
     Active Substance: PYRIDOSTIGMINE BROMIDE
     Dosage: UNK
  2. OFLOCET [Suspect]
     Active Substance: OFLOXACIN
     Indication: MEDICAL DEVICE SITE ABSCESS
     Dosage: 200 MG, SINGLE
     Route: 042
     Dates: start: 20160812, end: 20160812
  3. SINEMET [Concomitant]
     Active Substance: CARBIDOPA\LEVODOPA
     Dosage: UNK
  4. DALACINE [Suspect]
     Active Substance: CLINDAMYCIN HYDROCHLORIDE
     Indication: MEDICAL DEVICE SITE ABSCESS
     Dosage: 600 MG, SINGLE
     Route: 042
     Dates: start: 20160812, end: 20160812
  5. CEFTRIAXONE PANPHARMA [Concomitant]
     Active Substance: CEFTRIAXONE
     Dosage: 2 G, DAILY
     Route: 042
     Dates: start: 20160810, end: 20160812

REACTIONS (2)
  - Cardio-respiratory arrest [Recovered/Resolved with Sequelae]
  - Anaphylactic shock [Recovered/Resolved with Sequelae]

NARRATIVE: CASE EVENT DATE: 20160812
